FAERS Safety Report 7124897-X (Version None)
Quarter: 2010Q4

REPORT INFORMATION
  Report Type: 
  Country: None (occurrence: None)
  Receive Date: 20101129
  Receipt Date: 20101123
  Transmission Date: 20110411
  Serious: Yes (Death, Hospitalization, Other)
  Sender: FDA-Public Use
  Company Number: PHHY2010BR27800

PATIENT
  Age: 79 Year
  Sex: Male

DRUGS (5)
  1. FORASEQ [Suspect]
     Indication: EMPHYSEMA
     Dosage: 1 DF, BID
     Dates: start: 20090101
  2. FLUTICASONE FUROATE [Concomitant]
  3. BEROTEC [Concomitant]
  4. SERUM PHYSIOLOGICAL [Concomitant]
  5. ATROVENT [Concomitant]

REACTIONS (12)
  - CARDIAC DISORDER [None]
  - CONDITION AGGRAVATED [None]
  - DRY MOUTH [None]
  - DYSPNOEA [None]
  - EMPHYSEMA [None]
  - FATIGUE [None]
  - JOINT SWELLING [None]
  - MALAISE [None]
  - MULTI-ORGAN FAILURE [None]
  - NODULE [None]
  - ORAL CANDIDIASIS [None]
  - VEIN DISORDER [None]
